FAERS Safety Report 17662970 (Version 2)
Quarter: 2020Q2

REPORT INFORMATION
  Report Type: Spontaneous
  Country: US (occurrence: US)
  Receive Date: 20200413
  Receipt Date: 20200608
  Transmission Date: 20200713
  Serious: Yes (Other)
  Sender: FDA-Public Use
  Company Number: US-LUNDBECK-DKLU3014978

PATIENT
  Age: 5 Year
  Sex: Female
  Weight: 27 kg

DRUGS (35)
  1. SABRIL [Suspect]
     Active Substance: VIGABATRIN
     Dosage: 60 MG/KG/DAY
     Route: 065
     Dates: start: 2014
  2. TAURINE [Concomitant]
     Active Substance: TAURINE
     Indication: PRODUCT USED FOR UNKNOWN INDICATION
     Route: 065
  3. SABRIL [Suspect]
     Active Substance: VIGABATRIN
     Route: 065
     Dates: start: 20200114
  4. EPIDIOLEX [Concomitant]
     Active Substance: CANNABIDIOL
     Indication: TUBEROUS SCLEROSIS COMPLEX
     Route: 065
     Dates: start: 20190904
  5. DEXAMETHASONE. [Concomitant]
     Active Substance: DEXAMETHASONE
     Indication: PRODUCT USED FOR UNKNOWN INDICATION
     Route: 065
  6. DIASTAT [Concomitant]
     Active Substance: DIAZEPAM
     Indication: PRODUCT USED FOR UNKNOWN INDICATION
     Route: 065
  7. LANSOPRAZOLE. [Concomitant]
     Active Substance: LANSOPRAZOLE
     Indication: PRODUCT USED FOR UNKNOWN INDICATION
     Route: 065
  8. LYSINE [Concomitant]
     Active Substance: LYSINE
     Indication: PRODUCT USED FOR UNKNOWN INDICATION
     Route: 065
  9. FELBATOL [Concomitant]
     Active Substance: FELBAMATE
     Indication: EPILEPSY
     Route: 065
     Dates: start: 20191120
  10. FELBATOL [Concomitant]
     Active Substance: FELBAMATE
     Indication: TUBEROUS SCLEROSIS COMPLEX
     Route: 065
     Dates: start: 20191122
  11. CLONAZEPAM. [Concomitant]
     Active Substance: CLONAZEPAM
     Indication: PRODUCT USED FOR UNKNOWN INDICATION
     Route: 065
  12. SABRIL [Suspect]
     Active Substance: VIGABATRIN
     Indication: TUBEROUS SCLEROSIS COMPLEX
     Route: 065
     Dates: start: 20200114
  13. SABRIL [Suspect]
     Active Substance: VIGABATRIN
     Dosage: 125 MG/KG/DAY
     Route: 048
     Dates: start: 2014
  14. EPIDIOLEX [Concomitant]
     Active Substance: CANNABIDIOL
     Dosage: 100 MG/ML
     Route: 065
  15. VIT D [Concomitant]
     Active Substance: VITAMIN D NOS
     Indication: PRODUCT USED FOR UNKNOWN INDICATION
     Dosage: 1000 UNITS DAILY
     Route: 065
  16. SABRIL [Suspect]
     Active Substance: VIGABATRIN
     Dosage: 83 MG/KG/DAY
     Route: 065
     Dates: start: 2014
  17. AFINITOR [Suspect]
     Active Substance: EVEROLIMUS
     Indication: PRODUCT USED FOR UNKNOWN INDICATION
     Route: 065
     Dates: start: 20191018, end: 202001
  18. VITAMIN D3 [Concomitant]
     Active Substance: CHOLECALCIFEROL
     Indication: PRODUCT USED FOR UNKNOWN INDICATION
     Route: 065
  19. FELBATOL [Concomitant]
     Active Substance: FELBAMATE
     Route: 065
  20. MIDAZOLAM. [Concomitant]
     Active Substance: MIDAZOLAM
     Indication: SEIZURE
     Route: 065
  21. SABRIL [Suspect]
     Active Substance: VIGABATRIN
     Indication: INFANTILE SPASMS
     Route: 065
     Dates: start: 20200114
  22. EPIDIOLEX [Concomitant]
     Active Substance: CANNABIDIOL
     Indication: EPILEPSY
     Dosage: 20 MG/KG/DAY
     Route: 065
  23. FYCOMPA [Concomitant]
     Active Substance: PERAMPANEL
     Indication: PRODUCT USED FOR UNKNOWN INDICATION
     Route: 065
     Dates: start: 2015
  24. TRILEPTAL [Concomitant]
     Active Substance: OXCARBAZEPINE
     Indication: EPILEPSY
     Dosage: 27 MG/KG/DAY
     Route: 065
     Dates: start: 20191020
  25. SABRIL [Suspect]
     Active Substance: VIGABATRIN
     Indication: EPILEPSY
     Route: 048
     Dates: start: 20180620
  26. SENNA LAXATION [Concomitant]
     Indication: PRODUCT USED FOR UNKNOWN INDICATION
     Route: 065
  27. SABRIL [Suspect]
     Active Substance: VIGABATRIN
     Route: 065
     Dates: start: 20200114
  28. CETRIZINE [Concomitant]
     Active Substance: CETIRIZINE HYDROCHLORIDE
     Indication: PRODUCT USED FOR UNKNOWN INDICATION
     Route: 065
  29. FELBAMATE. [Concomitant]
     Active Substance: FELBAMATE
     Indication: EPILEPSY
     Dosage: ALTERNATE 450 MG BID AND 300 MG BID
     Route: 065
  30. FELBAMATE. [Concomitant]
     Active Substance: FELBAMATE
     Indication: TUBEROUS SCLEROSIS COMPLEX
     Dosage: ALTERNATE 450 MG BID AND 300 MG BID
     Route: 065
  31. FELBAMATE. [Concomitant]
     Active Substance: FELBAMATE
     Route: 065
  32. FELBATOL [Concomitant]
     Active Substance: FELBAMATE
     Route: 065
  33. TRILEPTAL [Concomitant]
     Active Substance: OXCARBAZEPINE
     Indication: TUBEROUS SCLEROSIS COMPLEX
     Dosage: 300 MG/5 ML
     Route: 065
  34. RANITIDINE. [Concomitant]
     Active Substance: RANITIDINE
     Indication: PRODUCT USED FOR UNKNOWN INDICATION
     Route: 065
  35. MULTIVITAMIN WITH IRON [Concomitant]
     Active Substance: IRON\VITAMINS
     Indication: PRODUCT USED FOR UNKNOWN INDICATION
     Route: 065

REACTIONS (4)
  - Influenza [Recovered/Resolved]
  - Respiratory syncytial virus infection [Recovered/Resolved]
  - Pneumonia [Recovered/Resolved]
  - Decreased immune responsiveness [Unknown]

NARRATIVE: CASE EVENT DATE: 202002
